FAERS Safety Report 11113405 (Version 1)
Quarter: 2015Q2

REPORT INFORMATION
  Report Type: Spontaneous
  Country: US (occurrence: US)
  Receive Date: 20150514
  Receipt Date: 20150514
  Transmission Date: 20150821
  Serious: No
  Sender: FDA-Public Use
  Company Number: US-009507513-1505USA004496

PATIENT
  Age: 63 Year
  Sex: Female
  Weight: 93 kg

DRUGS (2)
  1. ZOCOR [Suspect]
     Active Substance: SIMVASTATIN
     Indication: PROPHYLAXIS
     Dosage: 20 MG, QD
     Route: 048
     Dates: end: 2008
  2. ATENOLOL. [Concomitant]
     Active Substance: ATENOLOL
     Indication: HYPERTENSION
     Dosage: 50-25 TABLET DAILY
     Route: 048

REACTIONS (6)
  - Dysstasia [Recovered/Resolved]
  - Hepatomegaly [Recovered/Resolved]
  - Myalgia [Recovered/Resolved]
  - Muscular weakness [Recovered/Resolved]
  - Hepatic enzyme increased [Recovered/Resolved]
  - Muscle spasms [Recovered/Resolved]

NARRATIVE: CASE EVENT DATE: 200805
